FAERS Safety Report 6729946-6 (Version None)
Quarter: 2010Q2

REPORT INFORMATION
  Report Type: 
  Country: None (occurrence: None)
  Receive Date: 20100518
  Receipt Date: 20100518
  Transmission Date: 20101027
  Serious: Yes (Death)
  Sender: FDA-Public Use
  Company Number: US-ROXANE LABORATORIES, INC.-2010-RO-00586RO

PATIENT
  Sex: Male

DRUGS (1)
  1. METHADONE [Suspect]
     Route: 048

REACTIONS (2)
  - HOMICIDE [None]
  - THERAPEUTIC AGENT TOXICITY [None]
